FAERS Safety Report 7491353-9 (Version None)
Quarter: 2011Q1

REPORT INFORMATION
  Report Type: 
  Country: None (occurrence: None)
  Receive Date: 20110318
  Receipt Date: 20100528
  Transmission Date: 20110831
  Serious: Yes (Other)
  Sender: FDA-Public Use
  Company Number: 1-0510-35

PATIENT
  Sex: Female

DRUGS (10)
  1. DERMA-SMOOTHE/FS [Suspect]
     Indication: ERYTHEMA
     Dosage: TOPICAL
     Route: 061
  2. AVAPRO [Concomitant]
  3. NORVASC [Concomitant]
  4. HYDROCODONE BITARTRATE [Concomitant]
  5. SUDAFED 12 HOUR [Concomitant]
  6. FUROSEMIDE [Concomitant]
  7. NUKASITE [Concomitant]
  8. EMAFYBROSIL [Concomitant]
  9. ENSEDIA [Concomitant]
  10. LORATADINE [Concomitant]

REACTIONS (3)
  - COUGH [None]
  - CHILLS [None]
  - RHINORRHOEA [None]
